FAERS Safety Report 12405584 (Version 1)
Quarter: 2016Q2

REPORT INFORMATION
  Report Type: Spontaneous
  Country: US (occurrence: None)
  Receive Date: 20160525
  Receipt Date: 20160525
  Transmission Date: 20160815
  Serious: Yes (Hospitalization)
  Sender: FDA-Public Use
  Company Number: None

PATIENT
  Age: 74 Year
  Sex: Male
  Weight: 93.44 kg

DRUGS (17)
  1. METOPROLOL, 50MG [Suspect]
     Active Substance: METOPROLOL
     Indication: HYPERTENSION
     Route: 048
     Dates: start: 20151208, end: 20160427
  2. METFORMIN (GLUCOPHAGE) [Concomitant]
  3. BECLOMETHASONE DIPROPIONATE (QVAR) [Concomitant]
  4. NITROGLYCERIN (NITROSTAT) [Concomitant]
  5. IP TOPIRAMATE [Concomitant]
  6. ONETOUCH ULTRA TEST) [Concomitant]
  7. QUETIAPINE (SEROQUEL) [Concomitant]
  8. OXCARBAZEPINE. [Suspect]
     Active Substance: OXCARBAZEPINE
  9. OLANZAPEIN [Concomitant]
  10. ZIPRASIDONE. [Suspect]
     Active Substance: ZIPRASIDONE
  11. LASIX [Concomitant]
     Active Substance: FUROSEMIDE
  12. LACTULOSE. [Concomitant]
     Active Substance: LACTULOSE
  13. GLIPIZIDE (GLUCOTROL) [Concomitant]
  14. COLCHICINE. [Suspect]
     Active Substance: COLCHICINE
  15. LISINOPRIL (PRINIVIL/ZESTRIL) [Concomitant]
  16. PRILOSEC [Concomitant]
     Active Substance: OMEPRAZOLE MAGNESIUM
  17. DIVALPROEX [Concomitant]
     Active Substance: DIVALPROEX SODIUM

REACTIONS (3)
  - Hallucination [None]
  - Confusional state [None]
  - Hypertension [None]

NARRATIVE: CASE EVENT DATE: 20160427
